FAERS Safety Report 23149547 (Version 2)
Quarter: 2023Q4

REPORT INFORMATION
  Report Type: Spontaneous
  Country: US (occurrence: US)
  Receive Date: 20231106
  Receipt Date: 20231108
  Transmission Date: 20240109
  Serious: Yes (Death, Hospitalization, Other)
  Sender: FDA-Public Use
  Company Number: US-ABBVIE-5480498

PATIENT
  Age: 87 Year
  Sex: Male
  Weight: 27.669 kg

DRUGS (3)
  1. IMBRUVICA [Suspect]
     Active Substance: IBRUTINIB
     Indication: B-cell lymphoma
     Dosage: FORM STRENGTH WAS 280 MILLIGRAM
     Route: 048
     Dates: start: 202303, end: 202310
  2. IMBRUVICA [Suspect]
     Active Substance: IBRUTINIB
     Indication: B-cell lymphoma
     Dosage: FORM STRENGTH WAS 280 MILLIGRAM
     Route: 048
     Dates: start: 202210, end: 20221130
  3. REVLIMID [Concomitant]
     Active Substance: LENALIDOMIDE
     Indication: B-cell lymphoma

REACTIONS (10)
  - Death [Fatal]
  - Pneumonia [Unknown]
  - Hypovolaemia [Unknown]
  - COVID-19 [Unknown]
  - Dyspnoea [Unknown]
  - Emphysema [Unknown]
  - Immunosuppression [Unknown]
  - Chronic obstructive pulmonary disease [Unknown]
  - Acute myocardial infarction [Unknown]
  - Cardiogenic shock [Unknown]

NARRATIVE: CASE EVENT DATE: 20231001
